FAERS Safety Report 5611788-6 (Version None)
Quarter: 2008Q1

REPORT INFORMATION
  Report Type: 
  Country: None (occurrence: None)
  Receive Date: 20080128
  Receipt Date: 20080123
  Transmission Date: 20080703
  Serious: Yes (Hospitalization)
  Sender: FDA-Public Use
  Company Number: TIF2008A00023

PATIENT
  Age: 79 Year
  Sex: Male

DRUGS (4)
  1. LEUPROLIDE ACETATE [Suspect]
     Indication: PROSTATE CANCER
     Dosage: (11.25 MG)
     Route: 058
  2. CANDESARTAN [Concomitant]
  3. CILEXETIL (CANDESARTAN CILEXETIL) [Concomitant]
  4. ACETYLSALICYLATE LYSINE (ACETYLSALICYLATE LYSINE) [Concomitant]

REACTIONS (11)
  - ANAEMIA [None]
  - BLOOD ALBUMIN DECREASED [None]
  - BLOOD TESTOSTERONE DECREASED [None]
  - BODY MASS INDEX INCREASED [None]
  - DUODENITIS [None]
  - GASTRITIS EROSIVE [None]
  - HEPATIC STEATOSIS [None]
  - IATROGENIC INJURY [None]
  - LEUKOCYTOSIS [None]
  - METABOLIC SYNDROME [None]
  - PNEUMONIA [None]
